FAERS Safety Report 8971479 (Version 1)
Quarter: 2012Q4

REPORT INFORMATION
  Report Type: 
  Country: DE (occurrence: DE)
  Receive Date: 20121218
  Receipt Date: 20121218
  Transmission Date: 20130627
  Serious: Yes (Life-Threatening, Other)
  Sender: FDA-Public Use
  Company Number: PHHY2012DE116246

PATIENT
  Sex: Female
  Weight: 54 kg

DRUGS (1)
  1. CICLOSPORIN [Suspect]
     Indication: PSORIASIS
     Dosage: 250 mg, daily
     Dates: start: 201011, end: 201202

REACTIONS (6)
  - Suicidal ideation [Recovered/Resolved]
  - Psychotic disorder [Recovered/Resolved]
  - Hyperhidrosis [Recovered/Resolved]
  - Daydreaming [Recovered/Resolved]
  - Breath odour [Recovered/Resolved]
  - Nightmare [Recovered/Resolved]
